FAERS Safety Report 4281905-1 (Version None)
Quarter: 2004Q1

REPORT INFORMATION
  Report Type: 
  Country: None (occurrence: None)
  Receive Date: 20040128
  Receipt Date: 20031201
  Transmission Date: 20041129
  Serious: Yes (Other)
  Sender: FDA-Public Use
  Company Number: 234270

PATIENT
  Age: 54 Year
  Sex: Male
  Weight: 92 kg

DRUGS (6)
  1. NORDITROPIN [Suspect]
     Indication: GROWTH HORMONE DEFICIENCY
     Dosage: 0.3 MG, QD, UNK
     Dates: start: 20010220, end: 20030601
  2. SUSTANON 250 (TESTOSTERONE DECANOATE [Concomitant]
  3. TESTOSTERONE ISOCAPROATE [Concomitant]
  4. TESTOSTERONE [Concomitant]
  5. PHENYLPROPIONATE [Concomitant]
  6. TESTOSTERONE PROPIONATE [Concomitant]

REACTIONS (1)
  - GLIOBLASTOMA [None]
